FAERS Safety Report 23338589 (Version 1)
Quarter: 2023Q4

REPORT INFORMATION
  Report Type: Spontaneous
  Country: CN (occurrence: CN)
  Receive Date: 20231226
  Receipt Date: 20231226
  Transmission Date: 20240109
  Serious: Yes (Disabling)
  Sender: FDA-Public Use
  Company Number: CN-BAYER-2023A183806

PATIENT
  Age: 41 Year
  Sex: Male
  Weight: 76.5 kg

DRUGS (4)
  1. GLUCOBAY [Suspect]
     Active Substance: ACARBOSE
     Indication: Diabetes mellitus
     Dosage: 50 MG, TID
     Route: 048
     Dates: start: 20231215, end: 20231221
  2. METFORMIN HYDROCHLORIDE [Suspect]
     Active Substance: METFORMIN HYDROCHLORIDE
     Indication: Diabetes mellitus
     Dosage: 0.5 G, BID
     Route: 048
     Dates: start: 20231214, end: 20231221
  3. GLIQUIDONE [Concomitant]
     Active Substance: GLIQUIDONE
     Indication: Diabetes mellitus
     Dosage: 30 MG, TID
     Route: 048
     Dates: start: 20231214, end: 20231221
  4. SILIBININ [Concomitant]
     Active Substance: SILIBININ
     Indication: Hepatic failure
     Dosage: 70 MG, TID
     Route: 048
     Dates: start: 20231214, end: 20231221

REACTIONS (1)
  - Drug-induced liver injury [Unknown]

NARRATIVE: CASE EVENT DATE: 20231221
